FAERS Safety Report 10475059 (Version 1)
Quarter: 2014Q3

REPORT INFORMATION
  Report Type: Spontaneous
  Country: US (occurrence: US)
  Receive Date: 20140925
  Receipt Date: 20140925
  Transmission Date: 20150326
  Serious: Yes (Other)
  Sender: FDA-Public Use
  Company Number: US-AMGEN-GBRSP2014073083

PATIENT
  Sex: Female
  Weight: 84 kg

DRUGS (1)
  1. PROLIA [Suspect]
     Active Substance: DENOSUMAB
     Indication: OSTEOPOROSIS POSTMENOPAUSAL
     Dosage: UNK
     Route: 065

REACTIONS (6)
  - Fall [Unknown]
  - Diabetes mellitus [Unknown]
  - Obesity [Unknown]
  - Hypertension [Unknown]
  - Hyperlipidaemia [Unknown]
  - Back pain [Unknown]
